FAERS Safety Report 15402111 (Version 1)
Quarter: 2018Q3

REPORT INFORMATION
  Report Type: Spontaneous
  Country: US (occurrence: US)
  Receive Date: 20180915
  Receipt Date: 20180915
  Transmission Date: 20181010
  Serious: Yes (Hospitalization)
  Sender: FDA-Public Use
  Company Number: None

PATIENT
  Age: 53 Year
  Sex: Female
  Weight: 81.9 kg

DRUGS (7)
  1. LISINOPRIL. [Suspect]
     Active Substance: LISINOPRIL
     Indication: HYPERTENSION
     Dosage: ?          QUANTITY:1 TABLET(S);?
     Route: 048
     Dates: start: 20100731
  2. CYMBALTA [Concomitant]
     Active Substance: DULOXETINE HYDROCHLORIDE
  3. BUSPHAR [Concomitant]
  4. BOTASLIC [Concomitant]
  5. HYDROCHLORIDE [Concomitant]
     Active Substance: UNSPECIFIED INGREDIENT
  6. PREPRO [Concomitant]
  7. LYRICA [Concomitant]
     Active Substance: PREGABALIN

REACTIONS (3)
  - Adverse drug reaction [None]
  - Impaired work ability [None]
  - Deformity [None]

NARRATIVE: CASE EVENT DATE: 20180723
